FAERS Safety Report 17431291 (Version 1)
Quarter: 2020Q1

REPORT INFORMATION
  Report Type: Spontaneous
  Country: US (occurrence: US)
  Receive Date: 20200218
  Receipt Date: 20200218
  Transmission Date: 20200409
  Serious: Yes (Hospitalization, Other)
  Sender: FDA-Public Use
  Company Number: US-ASTRAZENECA-2020SE21611

PATIENT
  Age: 71 Year
  Sex: Male

DRUGS (1)
  1. BRILINTA [Suspect]
     Active Substance: TICAGRELOR
     Route: 048
     Dates: start: 202001, end: 202001

REACTIONS (2)
  - Product dose omission [Unknown]
  - Reocclusion [Unknown]

NARRATIVE: CASE EVENT DATE: 202001
